FAERS Safety Report 6050834-5 (Version None)
Quarter: 2009Q1

REPORT INFORMATION
  Report Type: 
  Country: None (occurrence: None)
  Receive Date: 20090126
  Receipt Date: 20080423
  Transmission Date: 20090719
  Serious: No
  Sender: FDA-Public Use
  Company Number: US-ABBOTT-08P-163-0448728-00

PATIENT
  Sex: Female

DRUGS (4)
  1. TRICOR [Suspect]
     Indication: DRUG USE FOR UNKNOWN INDICATION
     Dates: start: 20080301, end: 20080301
  2. ENALAPRIL [Suspect]
     Indication: DRUG USE FOR UNKNOWN INDICATION
     Dates: end: 20080301
  3. SYMLINPEN 120 PEN-INJECTOR [Suspect]
     Indication: TYPE 2 DIABETES MELLITUS
     Route: 058
     Dates: start: 20080327
  4. SYMLINPEN 120 PEN-INJECTOR [Suspect]
     Route: 058
     Dates: start: 20080301, end: 20080301

REACTIONS (2)
  - PALPITATIONS [None]
  - VISION BLURRED [None]
